FAERS Safety Report 12177212 (Version 3)
Quarter: 2016Q2

REPORT INFORMATION
  Report Type: Spontaneous
  Country: US (occurrence: US)
  Receive Date: 20160314
  Receipt Date: 20160531
  Transmission Date: 20160815
  Serious: Yes (Other)
  Sender: FDA-Public Use
  Company Number: US-BAYER-2016-048226

PATIENT
  Sex: Female

DRUGS (2)
  1. LEXAPRO [Concomitant]
     Active Substance: ESCITALOPRAM OXALATE
  2. MIRENA [Suspect]
     Active Substance: LEVONORGESTREL
     Dosage: 20 MCG/24HR, CONT
     Route: 015

REACTIONS (16)
  - Muscle spasms [Unknown]
  - Insomnia [Unknown]
  - Dizziness [Unknown]
  - Adverse event [None]
  - Abdominal pain [None]
  - Menstruation irregular [Unknown]
  - Dysmenorrhoea [Unknown]
  - Genital haemorrhage [Unknown]
  - Dyspareunia [Unknown]
  - Malaise [Unknown]
  - Pelvic pain [Unknown]
  - Nausea [Unknown]
  - Syncope [Unknown]
  - Migraine [Unknown]
  - Fatigue [Unknown]
  - Depression [Unknown]
